FAERS Safety Report 22201072 (Version 1)
Quarter: 2023Q2

REPORT INFORMATION
  Report Type: Spontaneous
  Country: TR (occurrence: TR)
  Receive Date: 20230412
  Receipt Date: 20230412
  Transmission Date: 20230722
  Serious: Yes (Other)
  Sender: FDA-Public Use
  Company Number: TR-Axellia-004676

PATIENT
  Age: 26 Year
  Sex: Male

DRUGS (3)
  1. COLISTIMETHATE SODIUM [Suspect]
     Active Substance: COLISTIMETHATE SODIUM
     Indication: Brain abscess
     Dosage: 4X150 MG
  2. MEROPENEM [Concomitant]
     Active Substance: MEROPENEM
     Indication: Brain abscess
     Dosage: 3X2 GM
  3. TIGECYCLINE [Concomitant]
     Active Substance: TIGECYCLINE
     Indication: Brain abscess
     Dosage: 1X100 MG, AFTER IV LOADING DOSE 2X50 MG

REACTIONS (5)
  - Hypokalaemia [Unknown]
  - Loss of consciousness [Unknown]
  - Hypomagnesaemia [Unknown]
  - Hypocalcaemia [Unknown]
  - Hypophosphataemia [Unknown]
